FAERS Safety Report 9620924 (Version 1)
Quarter: 2013Q4

REPORT INFORMATION
  Report Type: Spontaneous
  Country: FR (occurrence: FR)
  Receive Date: 20131015
  Receipt Date: 20131015
  Transmission Date: 20140711
  Serious: Yes (Hospitalization)
  Sender: FDA-Public Use
  Company Number: FR-JNJFOC-20131003843

PATIENT
  Age: 77 Year
  Sex: Male

DRUGS (11)
  1. RISPERDAL [Suspect]
     Indication: PRODUCT USED FOR UNKNOWN INDICATION
     Route: 048
     Dates: start: 20130719, end: 20130813
  2. STILNOX [Suspect]
     Indication: PRODUCT USED FOR UNKNOWN INDICATION
     Route: 048
     Dates: start: 20130719, end: 20130813
  3. URBANYL [Suspect]
     Indication: PRODUCT USED FOR UNKNOWN INDICATION
     Dosage: 5 MG, 4 AT 5 DOSES A DAY
     Route: 048
     Dates: start: 2012, end: 20130813
  4. REMINYL [Concomitant]
     Dosage: 16 AT 1 DOSE
     Route: 065
     Dates: start: 2006
  5. SOTALOL [Concomitant]
     Dosage: 80 AT 1/2 DOSE TWICE A DAY
     Route: 065
  6. ATACAND [Concomitant]
     Dosage: 8 ONCE A DAY
     Route: 065
  7. KARDEGIC [Concomitant]
     Dosage: 75 ONCE A DAY
     Route: 065
  8. OMIX [Concomitant]
     Route: 065
  9. AVODART [Concomitant]
     Route: 065
  10. MELAXOSE [Concomitant]
     Route: 065
  11. ALVERINE CITRATE [Concomitant]
     Route: 065

REACTIONS (3)
  - Dysarthria [Recovered/Resolved]
  - Somnolence [Recovered/Resolved]
  - Abnormal behaviour [Recovered/Resolved]
